FAERS Safety Report 4359222-0 (Version None)
Quarter: 2004Q2

REPORT INFORMATION
  Report Type: 
  Country: None (occurrence: None)
  Receive Date: 20040517
  Receipt Date: 20040517
  Transmission Date: 20050107
  Serious: Yes (Other)
  Sender: FDA-Public Use
  Company Number: None

PATIENT
  Age: 50 Year
  Sex: Male
  Weight: 77.1115 kg

DRUGS (10)
  1. SKELAXIN [Suspect]
     Indication: NERVE INJURY
     Dosage: 1 TABLET 3X /DAY
  2. NYQUIL [Concomitant]
  3. CARDURA [Concomitant]
  4. TOPAMAX [Concomitant]
  5. LAMICTAL [Concomitant]
  6. TRILEPTAL [Concomitant]
  7. RISPERDAL [Concomitant]
  8. KLONOPIN [Concomitant]
  9. LORAZEPAM [Concomitant]
  10. MOTRIN [Concomitant]

REACTIONS (3)
  - ASTHENIA [None]
  - FEELING ABNORMAL [None]
  - HYPONATRAEMIA [None]
